FAERS Safety Report 13081329 (Version 1)
Quarter: 2016Q4

REPORT INFORMATION
  Report Type: Spontaneous
  Country: NZ (occurrence: NZ)
  Receive Date: 20161228
  Receipt Date: 20161228
  Transmission Date: 20170207
  Serious: Yes (Other)
  Sender: FDA-Public Use
  Company Number: NZ-AKORN PHARMACEUTICALS-2016AKN00926

PATIENT

DRUGS (1)
  1. ISOTRETINOIN [Suspect]
     Active Substance: ISOTRETINOIN
     Indication: PAPULOPUSTULAR ROSACEA
     Dosage: 20 MG, 1X/DAY

REACTIONS (1)
  - Mood altered [Unknown]
